FAERS Safety Report 6703618-6 (Version None)
Quarter: 2010Q2

REPORT INFORMATION
  Report Type: 
  Country: None (occurrence: None)
  Receive Date: 20100430
  Receipt Date: 20100429
  Transmission Date: 20101027
  Serious: Yes (Death)
  Sender: FDA-Public Use
  Company Number: PHHY2010AU19131

PATIENT
  Sex: Male

DRUGS (1)
  1. CLOZARIL [Suspect]
     Dosage: 450 MG, UNK
     Dates: start: 20100123

REACTIONS (3)
  - CARDIAC ARREST [None]
  - INTRACRANIAL ANEURYSM [None]
  - RESPIRATORY ARREST [None]
